FAERS Safety Report 13824826 (Version 1)
Quarter: 2017Q3

REPORT INFORMATION
  Report Type: Spontaneous
  Country: US (occurrence: US)
  Receive Date: 20170802
  Receipt Date: 20170802
  Transmission Date: 20171127
  Serious: No
  Sender: FDA-Public Use
  Company Number: US-ABBVIE-16P-163-1684329-00

PATIENT
  Age: 70 Year
  Sex: Male

DRUGS (1)
  1. NIASPAN [Suspect]
     Active Substance: NIACIN
     Indication: PRODUCT USED FOR UNKNOWN INDICATION
     Route: 048
     Dates: start: 2011

REACTIONS (5)
  - Laceration [Unknown]
  - Fall [Unknown]
  - Middle insomnia [Unknown]
  - Flushing [Unknown]
  - Loss of consciousness [Unknown]
